FAERS Safety Report 10130316 (Version 1)
Quarter: 2014Q2

REPORT INFORMATION
  Report Type: Spontaneous
  Country: US (occurrence: None)
  Receive Date: 20140425
  Receipt Date: 20140425
  Transmission Date: 20141212
  Serious: Yes (Life-Threatening, Disabling, Other)
  Sender: FDA-Public Use
  Company Number: None

PATIENT
  Age: 13 Year
  Sex: Female

DRUGS (3)
  1. LEXAPRO [Suspect]
     Indication: DEPRESSION
     Dosage: 20MGS DAILY, ONCE DAILY, TAKEN WITH WATER
  2. LEXAPRO [Suspect]
     Indication: POST-TRAUMATIC STRESS DISORDER
     Dosage: 20MGS DAILY, ONCE DAILY, TAKEN WITH WATER
  3. LEXAPRO [Suspect]
     Indication: ATTENTION DEFICIT/HYPERACTIVITY DISORDER
     Dosage: 20MGS DAILY, ONCE DAILY, TAKEN WITH WATER

REACTIONS (4)
  - Gingival disorder [None]
  - Dental caries [None]
  - Attention deficit/hyperactivity disorder [None]
  - Educational problem [None]
